FAERS Safety Report 15458143 (Version 1)
Quarter: 2018Q4

REPORT INFORMATION
  Report Type: Report from Study
  Country: US (occurrence: US)
  Receive Date: 20181003
  Receipt Date: 20181003
  Transmission Date: 20190204
  Serious: No
  Sender: FDA-Public Use
  Company Number: PHHY2018US115082

PATIENT
  Age: 52 Year
  Sex: Female
  Weight: 81.65 kg

DRUGS (1)
  1. COSENTYX [Suspect]
     Active Substance: SECUKINUMAB
     Indication: PSORIATIC ARTHROPATHY
     Dosage: 150 MG, QMO
     Route: 058
     Dates: start: 201705

REACTIONS (1)
  - Sinusitis [Unknown]

NARRATIVE: CASE EVENT DATE: 20180604
